FAERS Safety Report 12448296 (Version 1)
Quarter: 2016Q2

REPORT INFORMATION
  Report Type: Spontaneous
  Country: GR (occurrence: GR)
  Receive Date: 20160608
  Receipt Date: 20160608
  Transmission Date: 20160815
  Serious: Yes (Life-Threatening, Hospitalization)
  Sender: FDA-Public Use
  Company Number: GR-BAYER-2016-102737

PATIENT
  Age: 46 Year
  Sex: Male
  Weight: 80 kg

DRUGS (1)
  1. VARDENAFIL HYDROCHLORIDE [Suspect]
     Active Substance: VARDENAFIL HYDROCHLORIDE TRIHYDRATE
     Indication: ERECTILE DYSFUNCTION
     Dosage: 20 MG, QD
     Route: 048
     Dates: start: 20160324, end: 20160325

REACTIONS (13)
  - Ocular hyperaemia [Recovered/Resolved]
  - Adenoidal disorder [Recovered/Resolved]
  - Vomiting [Recovered/Resolved]
  - Ocular discomfort [Recovered/Resolved]
  - Somnolence [Recovered/Resolved]
  - Sinus congestion [Recovered/Resolved]
  - Dizziness [Recovered/Resolved]
  - Visual impairment [Recovered/Resolved]
  - Abdominal pain [Recovered/Resolved]
  - Anxiety [Recovered/Resolved]
  - Erectile dysfunction [Recovered/Resolved]
  - Sleep disorder [Recovered/Resolved]
  - Malaise [Recovered/Resolved]

NARRATIVE: CASE EVENT DATE: 20160324
